FAERS Safety Report 18632244 (Version 1)
Quarter: 2020Q4

REPORT INFORMATION
  Report Type: Spontaneous
  Country: US (occurrence: US)
  Receive Date: 20201218
  Receipt Date: 20201218
  Transmission Date: 20210114
  Serious: No
  Sender: FDA-Public Use
  Company Number: US-HORIZON-2020HZN02427

PATIENT
  Age: 78 Year
  Sex: Female
  Weight: 61.4 kg

DRUGS (1)
  1. TEPEZZA [Suspect]
     Active Substance: TEPROTUMUMAB-TRBW
     Indication: TOXIC GOITRE
     Dosage: 610MG OVER 90 MIN
     Route: 050

REACTIONS (1)
  - SARS-CoV-2 test positive [Recovered/Resolved]
